FAERS Safety Report 8503275-2 (Version None)
Quarter: 2012Q3

REPORT INFORMATION
  Report Type: 
  Country: None (occurrence: None)
  Receive Date: 20120702
  Receipt Date: 20110902
  Transmission Date: 20120928
  Serious: Yes (Life-Threatening, Hospitalization, Other)
  Sender: FDA-Public Use
  Company Number: NL-023057

PATIENT
  Age: 68 Year
  Sex: Male

DRUGS (6)
  1. NIFEDIPINE [Concomitant]
  2. METFORMIN HYDROCHLORIDE [Concomitant]
  3. CHLORAMBUCIL (CHLORAMBUCIL) (60 MILLIGRAM) [Suspect]
     Indication: CHRONIC LYMPHOCYTIC LEUKAEMIA
     Dosage: SEE IMAGE
     Route: 048
     Dates: start: 20110314
  4. CHLORAMBUCIL (CHLORAMBUCIL) (60 MILLIGRAM) [Suspect]
     Indication: CHRONIC LYMPHOCYTIC LEUKAEMIA
     Dosage: SEE IMAGE
     Route: 048
     Dates: start: 20110425
  5. CHLORAMBUCIL (CHLORAMBUCIL) (60 MILLIGRAM) [Suspect]
     Indication: CHRONIC LYMPHOCYTIC LEUKAEMIA
     Dosage: SEE IMAGE
     Route: 048
     Dates: start: 20110623
  6. ALLOPURINOL [Concomitant]

REACTIONS (7)
  - HAEMOGLOBIN DECREASED [None]
  - PLEURAL ADHESION [None]
  - THROMBOCYTOPENIA [None]
  - FEBRILE NEUTROPENIA [None]
  - ASPERGILLOSIS [None]
  - COUGH [None]
  - DYSPNOEA [None]
